FAERS Safety Report 17586095 (Version 1)
Quarter: 2020Q1

REPORT INFORMATION
  Report Type: Spontaneous
  Country: US (occurrence: US)
  Receive Date: 20200326
  Receipt Date: 20200326
  Transmission Date: 20200409
  Serious: Yes (Hospitalization, Disabling)
  Sender: FDA-Public Use
  Company Number: None

PATIENT
  Age: 66 Year
  Sex: Female
  Weight: 69.75 kg

DRUGS (8)
  1. PROLIA [Concomitant]
     Active Substance: DENOSUMAB
  2. VITAMIN B12 [Concomitant]
     Active Substance: CYANOCOBALAMIN
  3. LIPOFLAVONOIDS [Concomitant]
  4. PROLIA [Suspect]
     Active Substance: DENOSUMAB
     Indication: OSTEOPOROSIS
     Route: 058
     Dates: start: 20200319, end: 20200319
  5. CITRICAL [Concomitant]
     Active Substance: CALCIUM CITRATE
  6. LOW DOSE ASPIRIN [Concomitant]
     Active Substance: ASPIRIN
  7. ESPMEPRAZOLE [Concomitant]
  8. NEXIUM [Concomitant]
     Active Substance: ESOMEPRAZOLE MAGNESIUM

REACTIONS (3)
  - Hypertension [None]
  - Chest pain [None]
  - Urticaria [None]

NARRATIVE: CASE EVENT DATE: 20200322
